FAERS Safety Report 7110379-8 (Version None)
Quarter: 2010Q4

REPORT INFORMATION
  Report Type: 
  Country: None (occurrence: None)
  Receive Date: 20101118
  Receipt Date: 20101109
  Transmission Date: 20110411
  Serious: Yes (Other)
  Sender: FDA-Public Use
  Company Number: US-AMGEN-QUU321962

PATIENT

DRUGS (2)
  1. ENBREL [Suspect]
     Indication: PSORIASIS
     Dosage: 50 MG, 2 TIMES/WK
     Route: 058
     Dates: start: 20080512
  2. ENBREL [Suspect]
     Indication: PSORIATIC ARTHROPATHY
     Dosage: 50 MG, QWK
     Dates: start: 19980101

REACTIONS (6)
  - ARTHRALGIA [None]
  - FINGER DEFORMITY [None]
  - INTERVERTEBRAL DISC DEGENERATION [None]
  - JOINT LOCK [None]
  - JOINT STIFFNESS [None]
  - PSORIASIS [None]
